FAERS Safety Report 5229438-X (Version None)
Quarter: 2007Q1

REPORT INFORMATION
  Report Type: 
  Country: None (occurrence: None)
  Receive Date: 20061201
  Receipt Date: 20060908
  Transmission Date: 20070707
  Serious: No
  Sender: FDA-Public Use
  Company Number: 2006PV021024

PATIENT
  Age: 62 Year
  Sex: Female
  Weight: 127.4608 kg

DRUGS (7)
  1. BYETTA [Suspect]
     Indication: DIABETES MELLITUS NON-INSULIN-DEPENDENT
     Dosage: SEE IMAGE
     Route: 058
     Dates: start: 20060722, end: 20060821
  2. BYETTA [Suspect]
     Indication: DIABETES MELLITUS NON-INSULIN-DEPENDENT
     Dosage: SEE IMAGE
     Route: 058
     Dates: start: 20060822
  3. GLIPIZIDE [Concomitant]
  4. METFORMIN HCL [Concomitant]
  5. INSULIN [Concomitant]
  6. GLIPIZIDE [Concomitant]
  7. METFORMIN HCL [Concomitant]

REACTIONS (6)
  - BLOOD GLUCOSE INCREASED [None]
  - CONSTIPATION [None]
  - DIARRHOEA [None]
  - DRUG EFFECT DECREASED [None]
  - NAUSEA [None]
  - WEIGHT DECREASED [None]
